FAERS Safety Report 17140916 (Version 3)
Quarter: 2020Q2

REPORT INFORMATION
  Report Type: Spontaneous
  Country: JP (occurrence: JP)
  Receive Date: 20191211
  Receipt Date: 20200407
  Transmission Date: 20200713
  Serious: Yes (Life-Threatening, Other)
  Sender: FDA-Public Use
  Company Number: JP-BRACCO-2019JP06573

PATIENT
  Age: 82 Year
  Sex: Male
  Weight: 68 kg

DRUGS (13)
  1. SUMILU STICK [Concomitant]
     Dosage: USE AS NEEDED, RIGHT SHOULDER AND BOTH KNEES
     Route: 003
  2. INISYNC [Concomitant]
     Active Substance: ALOGLIPTIN BENZOATE\METFORMIN HYDROCHLORIDE
     Dosage: DAILY DOSE 1 DF, AFTER MORNING
  3. SUMILU STICK [Concomitant]
     Dosage: USE AS NEEDED, RIGHT SHOULDER AND BOTH KNEES
     Route: 003
  4. IOPAMIRON [Suspect]
     Active Substance: IOPAMIDOL
     Indication: COMPUTERISED TOMOGRAM
     Dosage: 100 ML, SINGLE
     Route: 040
     Dates: start: 20191205, end: 20191205
  5. INISYNC [Concomitant]
     Active Substance: ALOGLIPTIN BENZOATE\METFORMIN HYDROCHLORIDE
     Dosage: DAILY DOSE 1 DF, AFTER MORNING
  6. FEXOFENADINE HYDROCHLORIDE. [Concomitant]
     Active Substance: FEXOFENADINE HYDROCHLORIDE
     Dosage: DAILY DOSE 2 DF, AFTER MORNING AND DINNER
  7. METFORMIN HYDROCHLORIDE MT [Concomitant]
     Active Substance: METFORMIN HYDROCHLORIDE
     Dosage: DAILY DOSE 2 DF, AFTER DINNER
  8. KARY UNI [Concomitant]
     Active Substance: PIRENOXINE
     Dosage: DAILY DOSE 3 TIMES, BOTH EYES
     Route: 047
  9. FEXOFENADINE HYDROCHLORIDE. [Concomitant]
     Active Substance: FEXOFENADINE HYDROCHLORIDE
     Dosage: DAILY DOSE 2 DF, AFTER MORNING AND DINNER
  10. METFORMIN HYDROCHLORIDE MT [Concomitant]
     Active Substance: METFORMIN HYDROCHLORIDE
     Dosage: DAILY DOSE 2 DF, AFTER DINNER
  11. KARY UNI [Concomitant]
     Active Substance: PIRENOXINE
     Dosage: DAILY DOSE 3 TIMES, BOTH EYES
     Route: 047
  12. TEARBALANCE [Concomitant]
     Active Substance: HYALURONATE SODIUM
     Dosage: DAILY DOSE 4-6 TIMES, BOTH EYES
     Route: 047
  13. TEARBALANCE [Concomitant]
     Active Substance: HYALURONATE SODIUM
     Dosage: DAILY DOSE 4-6 TIMES, BOTH EYES
     Route: 047

REACTIONS (2)
  - Anaphylactic shock [Recovered/Resolved]
  - Stress cardiomyopathy [Recovered/Resolved]

NARRATIVE: CASE EVENT DATE: 20191205
